FAERS Safety Report 12254129 (Version 1)
Quarter: 2016Q2

REPORT INFORMATION
  Report Type: Spontaneous
  Country: PT (occurrence: PT)
  Receive Date: 20160411
  Receipt Date: 20160411
  Transmission Date: 20160815
  Serious: Yes (Hospitalization)
  Sender: FDA-Public Use
  Company Number: PT-HERITAGE PHARMACEUTICALS-2016HTG00104

PATIENT
  Age: 1 Day
  Sex: Male
  Weight: 3.59 kg

DRUGS (2)
  1. ALPRAZOLAM. [Suspect]
     Active Substance: ALPRAZOLAM
     Indication: ANXIETY DISORDER
     Dosage: 0.5 MG, 1X/DAY
     Route: 064
  2. VENLAFAXINE HYDROCHLORIDE. [Suspect]
     Active Substance: VENLAFAXINE HYDROCHLORIDE
     Indication: DEPRESSION
     Dosage: 75 MG, 1X/DAY
     Route: 064

REACTIONS (7)
  - Drug interaction [Recovered/Resolved]
  - Mitral valve incompetence [Recovered/Resolved]
  - Foetal exposure during pregnancy [Recovered/Resolved]
  - Selective eating disorder [Recovered/Resolved]
  - Neonatal respiratory distress syndrome [Recovered/Resolved]
  - Ventricular dysfunction [Recovered/Resolved]
  - Hepatomegaly [Recovered/Resolved]
